FAERS Safety Report 4655182-3 (Version None)
Quarter: 2005Q2

REPORT INFORMATION
  Report Type: 
  Country: None (occurrence: None)
  Receive Date: 20050506
  Receipt Date: 20050428
  Transmission Date: 20051028
  Serious: Yes (Hospitalization)
  Sender: FDA-Public Use
  Company Number: US-GLAXOSMITHKLINE-A0556229A

PATIENT
  Age: 27 Year
  Sex: Male

DRUGS (2)
  1. FLONASE [Suspect]
     Indication: DRUG USE FOR UNKNOWN INDICATION
     Dosage: 1SPR PER DAY
     Route: 045
     Dates: start: 20010201
  2. NO CONCURRENT MEDICATION [Concomitant]

REACTIONS (6)
  - ABDOMINAL PAIN [None]
  - DIARRHOEA [None]
  - FAECES DISCOLOURED [None]
  - FUNGAL INFECTION [None]
  - MUSCLE SPASMS [None]
  - SYSTEMIC MYCOSIS [None]
